FAERS Safety Report 9580690 (Version 1)
Quarter: 2013Q3

REPORT INFORMATION
  Report Type: Spontaneous
  Country: US (occurrence: None)
  Receive Date: 20130916
  Receipt Date: 20130916
  Transmission Date: 20140515
  Serious: Yes (Other)
  Sender: FDA-Public Use
  Company Number: JPI-P-030803

PATIENT
  Age: 19 Year
  Sex: Female
  Weight: 58.06 kg

DRUGS (1)
  1. XYREM (500 MILLIGRAM/MILLILITERS, SOLUTION) (SODIUM OXYBATE) [Suspect]
     Indication: TREMOR
     Route: 048
     Dates: start: 20130318, end: 201303

REACTIONS (7)
  - Loss of consciousness [None]
  - Asthenia [None]
  - Nausea [None]
  - Fatigue [None]
  - Feeling drunk [None]
  - Disturbance in attention [None]
  - Inappropriate schedule of drug administration [None]
